FAERS Safety Report 20735958 (Version 2)
Quarter: 2022Q3

REPORT INFORMATION
  Report Type: Report from Study
  Country: US (occurrence: US)
  Receive Date: 20220421
  Receipt Date: 20220730
  Transmission Date: 20221026
  Serious: Yes (Hospitalization, Other)
  Sender: FDA-Public Use
  Company Number: US-TEVA-2022-US-2027204

PATIENT
  Age: 74 Year
  Sex: Female
  Weight: 50.3 kg

DRUGS (35)
  1. OXALIPLATIN [Suspect]
     Active Substance: OXALIPLATIN
     Indication: Pancreatic carcinoma metastatic
     Dosage: DAY 1 AND DAY 15 (85 MG/M2,1 IN 2 WK)
     Route: 042
     Dates: start: 20211221, end: 20220223
  2. OXALIPLATIN [Suspect]
     Active Substance: OXALIPLATIN
     Dosage: DAY 1 AND DAY 15 (85 MG/M2,1 IN 2 WK)
     Route: 042
     Dates: start: 20220406
  3. IRINOTECAN [Suspect]
     Active Substance: IRINOTECAN
     Indication: Pancreatic carcinoma metastatic
     Dosage: DAY 1 AND DAY 15 (256.5 MG,1 IN 2 WK)
     Route: 042
     Dates: start: 20211221, end: 20220209
  4. IRINOTECAN [Suspect]
     Active Substance: IRINOTECAN
     Dosage: DAY 1 AND DAY 15 (190.8 MG,1 IN 2 WK)
     Route: 042
     Dates: start: 20220223, end: 20220223
  5. IRINOTECAN [Suspect]
     Active Substance: IRINOTECAN
     Dosage: DAY 1 AND DAY 15 (190.8 MG,1 IN 2 WK)
     Route: 042
     Dates: start: 20220406
  6. FLUOROURACIL [Suspect]
     Active Substance: FLUOROURACIL
     Indication: Pancreatic carcinoma metastatic
     Dosage: DAYS 1 AND 15 (4104 MG,1 IN 2 WK)
     Route: 042
     Dates: start: 20211221, end: 20220209
  7. FLUOROURACIL [Suspect]
     Active Substance: FLUOROURACIL
     Dosage: DAYS 1 AND 15 (3816 MG,1 IN 2 WK)
     Route: 042
     Dates: start: 20220223, end: 20220223
  8. FLUOROURACIL [Suspect]
     Active Substance: FLUOROURACIL
     Dosage: DAYS 1 AND 15 (3816 MG,1 IN 2 WK)
     Route: 042
     Dates: start: 20220406
  9. LEUCOVORIN [Suspect]
     Active Substance: LEUCOVORIN
     Indication: Product used for unknown indication
     Route: 065
  10. BUDIGALIMAB [Suspect]
     Active Substance: BUDIGALIMAB
     Indication: Pancreatic carcinoma metastatic
     Dosage: DAY 3 (500 MG,1 IN 4 WK)
     Route: 042
     Dates: start: 20211223, end: 20220225
  11. BUDIGALIMAB [Suspect]
     Active Substance: BUDIGALIMAB
     Dosage: DAY 3 (500 MG,1 IN 4 WK)
     Route: 042
     Dates: start: 20220429
  12. GILORALIMAB [Suspect]
     Active Substance: GILORALIMAB
     Indication: Pancreatic carcinoma metastatic
     Dosage: DAY 3 (0.3 MG/M2,1 IN 4 WK)
     Route: 042
     Dates: start: 20211223, end: 20220225
  13. GILORALIMAB [Suspect]
     Active Substance: GILORALIMAB
     Dosage: DAY 3 (0.3 MG/M2,1 IN 4 WK)
     Route: 042
     Dates: start: 20220429
  14. LEUCOVORIN [Suspect]
     Active Substance: LEUCOVORIN
     Indication: Pancreatic carcinoma metastatic
     Dosage: DAY 1 AND DAY 15 (684MG, 1 IN 2 WK)
     Route: 042
     Dates: start: 20211221, end: 20220209
  15. LEUCOVORIN [Suspect]
     Active Substance: LEUCOVORIN
     Dosage: DAY 1 AND DAY 15 (636MG, 1 IN 2 WK)
     Route: 042
     Dates: start: 20220223, end: 20220223
  16. LEUCOVORIN [Suspect]
     Active Substance: LEUCOVORIN
     Dosage: DAY 1 AND DAY 15 (636 MG,1 IN 2 WK)
     Route: 042
     Dates: start: 20220406
  17. VITAMIN D [Concomitant]
     Active Substance: VITAMIN D NOS
     Indication: Vitamin D deficiency
     Dosage: 2000 IU, 1 IN 1 DAY
     Route: 048
     Dates: start: 20150101
  18. DIPHENHYDRAMINE [Concomitant]
     Active Substance: DIPHENHYDRAMINE
     Indication: Hypersensitivity
     Dosage: 1 AS REQUIRED
     Route: 048
     Dates: start: 20211217
  19. DIPHENHYDRAMINE [Concomitant]
     Active Substance: DIPHENHYDRAMINE
     Indication: Pruritus
     Dosage: AS REQUIRED
     Route: 048
     Dates: start: 20220104
  20. PREDNISONE [Concomitant]
     Active Substance: PREDNISONE
     Indication: Hypersensitivity
     Dosage: (50 MG,1 AS REQUIRED)
     Route: 048
     Dates: start: 20211216
  21. HYDROCORTISONE [Concomitant]
     Active Substance: HYDROCORTISONE
     Indication: Rectal haemorrhage
     Dosage: 2.5% 1 AS REQUIRED
     Route: 061
     Dates: start: 20180725
  22. LIDOCAINE [Concomitant]
     Active Substance: LIDOCAINE
     Indication: Haemorrhoids
     Dosage: 4%, 1 AS REQUIRED
     Route: 061
     Dates: start: 20170101
  23. ASPIRIN [Concomitant]
     Active Substance: ASPIRIN
     Indication: Coronary artery disease
     Dosage: 81 MILLIGRAM DAILY;
     Route: 048
     Dates: start: 20161201
  24. CAMPHOR OIL [Concomitant]
     Active Substance: CAMPHOR OIL
     Indication: Herpes zoster reactivation
     Dosage: 1 APPLICATION (1 AS REQUIRED)
     Route: 061
     Dates: start: 20211226
  25. CAMPHOR OIL [Concomitant]
     Active Substance: CAMPHOR OIL
     Indication: Lip dry
  26. FLUCONAZOLE [Concomitant]
     Active Substance: FLUCONAZOLE
     Indication: Vaginal infection
     Dosage: 150 MILLIGRAM DAILY;
     Route: 048
     Dates: start: 20220207
  27. PETROLATUM [Concomitant]
     Active Substance: PETROLATUM
     Indication: Dry skin
     Dosage: 14%, 1 AS REQUIRED
     Route: 061
     Dates: start: 20220207
  28. LACTATED RINGERS SOLUTION [Concomitant]
     Active Substance: CALCIUM CHLORIDE\POTASSIUM CHLORIDE\SODIUM CHLORIDE\SODIUM LACTATE
     Indication: Hypotension
     Dosage: 1 LITER, ONCE
     Route: 042
     Dates: start: 20220128
  29. ONDANSETRON [Concomitant]
     Active Substance: ONDANSETRON
     Indication: Vomiting
     Dosage: 8MG, 1 AS REQUIRED
     Route: 048
     Dates: start: 20211213
  30. LANOLIN + PETROLATUM [Concomitant]
     Indication: Decubitus ulcer
     Dosage: 1 APPLICATION (1 AS REQUIRED)
     Route: 061
     Dates: start: 20220115
  31. VITAMIN B12 [Concomitant]
     Active Substance: CYANOCOBALAMIN
     Indication: Nutritional supplementation
     Dosage: 2000 IU, 1 IN 1 D
     Route: 048
     Dates: start: 20150101
  32. ZINC [Concomitant]
     Active Substance: ZINC
     Indication: Nutritional supplementation
     Dosage: 50 MILLIGRAM DAILY; 50MG, 1 IN 1 D
     Route: 048
     Dates: start: 20150101
  33. VITAMIN C [Concomitant]
     Active Substance: ASCORBIC ACID
     Indication: Nutritional supplementation
     Dosage: 1000 MILLIGRAM DAILY;
     Route: 048
     Dates: start: 20150101
  34. COD LIVER OIL [Concomitant]
     Active Substance: COD LIVER OIL
     Indication: Nutritional supplementation
     Dosage: 1000 MILLIGRAM DAILY;
     Route: 048
     Dates: start: 20150101
  35. VITAMINS [Concomitant]
     Active Substance: VITAMINS
     Indication: Nutritional supplementation
     Dosage: 1 TABLET, 1 IN 1 D
     Route: 048
     Dates: start: 20150101

REACTIONS (11)
  - Anaemia [Recovered/Resolved]
  - Vomiting [Recovered/Resolved]
  - Dehydration [Recovered/Resolved]
  - Nausea [Unknown]
  - Abdominal pain [Unknown]
  - Diarrhoea [Unknown]
  - Feeding disorder [Unknown]
  - Asthenia [Unknown]
  - Clostridium difficile infection [Recovered/Resolved]
  - Large intestinal obstruction [Recovered/Resolved]
  - Ileus [Recovered/Resolved]

NARRATIVE: CASE EVENT DATE: 20220307
